FAERS Safety Report 17447443 (Version 3)
Quarter: 2020Q4

REPORT INFORMATION
  Report Type: Spontaneous
  Country: US (occurrence: US)
  Receive Date: 20200221
  Receipt Date: 20201020
  Transmission Date: 20210113
  Serious: No
  Sender: FDA-Public Use
  Company Number: US-ELI_LILLY_AND_COMPANY-US202001011141

PATIENT
  Age: 64 Year
  Sex: Female

DRUGS (5)
  1. EMGALITY [Suspect]
     Active Substance: GALCANEZUMAB-GNLM
     Indication: MIGRAINE
     Dosage: 240 MG, UNKNOWN
     Route: 058
     Dates: start: 20200109
  2. EMGALITY [Suspect]
     Active Substance: GALCANEZUMAB-GNLM
     Indication: MIGRAINE
     Dosage: 240 MG, UNKNOWN
     Route: 058
     Dates: start: 20200109
  3. EMGALITY [Suspect]
     Active Substance: GALCANEZUMAB-GNLM
     Dosage: 120 MG, UNKNOWN
     Route: 058
  4. IMITREX [Concomitant]
     Active Substance: SUMATRIPTAN SUCCINATE
     Indication: MIGRAINE
     Dosage: UNK UNK, UNKNOWN
     Route: 065
  5. EMGALITY [Suspect]
     Active Substance: GALCANEZUMAB-GNLM
     Dosage: 120 MG, UNKNOWN
     Route: 058

REACTIONS (13)
  - Anxiety [Recovered/Resolved]
  - Injection site macule [Recovered/Resolved]
  - Injection site swelling [Recovered/Resolved]
  - Paraesthesia [Recovered/Resolved]
  - Injection site pain [Recovered/Resolved]
  - Palpitations [Recovered/Resolved]
  - Injection site pruritus [Recovered/Resolved]
  - Injection site erythema [Unknown]
  - Neurosis [Recovered/Resolved]
  - Cold sweat [Recovered/Resolved]
  - Dry throat [Recovered/Resolved]
  - Pruritus [Recovered/Resolved]
  - Injection site reaction [Unknown]

NARRATIVE: CASE EVENT DATE: 20200109
